FAERS Safety Report 15244094 (Version 1)
Quarter: 2018Q3

REPORT INFORMATION
  Report Type: Spontaneous
  Country: US (occurrence: US)
  Receive Date: 20180712
  Receipt Date: 20180712
  Transmission Date: 20181010
  Serious: Yes (Hospitalization)
  Sender: FDA-Public Use
  Company Number: None

PATIENT
  Age: 85 Year
  Sex: Male

DRUGS (1)
  1. WARFARIN [Suspect]
     Active Substance: WARFARIN
     Dates: start: 20180305, end: 20180704

REACTIONS (4)
  - Gastric haemorrhage [None]
  - International normalised ratio increased [None]
  - Haematochezia [None]
  - Treatment noncompliance [None]

NARRATIVE: CASE EVENT DATE: 20180629
